FAERS Safety Report 10038347 (Version 2)
Quarter: 2014Q1

REPORT INFORMATION
  Report Type: Report from Study
  Country: US (occurrence: US)
  Receive Date: 20140326
  Receipt Date: 20140328
  Transmission Date: 20141002
  Serious: Yes (Hospitalization)
  Sender: FDA-Public Use
  Company Number: US-JNJFOC-20140310783

PATIENT
  Age: 18 Year
  Sex: Male
  Weight: 63.32 kg

DRUGS (7)
  1. REMICADE [Suspect]
     Indication: INFLAMMATORY BOWEL DISEASE
     Route: 042
     Dates: start: 20130504, end: 20130515
  2. 5-AMINOSALICYLIC ACID [Concomitant]
     Route: 048
  3. FERROUS SULPHATE [Concomitant]
     Route: 065
  4. ABILIFY [Concomitant]
     Route: 065
  5. HYDROCORTISONE [Concomitant]
     Route: 065
  6. PROZAC [Concomitant]
     Route: 065
  7. 6-MERCAPTOPURINE [Concomitant]
     Route: 065

REACTIONS (1)
  - Ileus [Recovered/Resolved]
